FAERS Safety Report 13340041 (Version 2)
Quarter: 2017Q3

REPORT INFORMATION
  Report Type: Report from Study
  Country: TR (occurrence: TR)
  Receive Date: 20170316
  Receipt Date: 20170908
  Transmission Date: 20171127
  Serious: No
  Sender: FDA-Public Use
  Company Number: TR-ROCHE-1906013

PATIENT
  Age: 52 Year
  Sex: Female

DRUGS (1)
  1. KADCYLA [Suspect]
     Active Substance: ADO-TRASTUZUMAB EMTANSINE
     Indication: BREAST CANCER
     Route: 065

REACTIONS (2)
  - Disease progression [Not Recovered/Not Resolved]
  - Drug ineffective [Unknown]
